FAERS Safety Report 6307239-9 (Version None)
Quarter: 2009Q3

REPORT INFORMATION
  Report Type: 
  Country: None (occurrence: None)
  Receive Date: 20090813
  Receipt Date: 20090730
  Transmission Date: 20100115
  Serious: Yes (Hospitalization, Other)
  Sender: FDA-Public Use
  Company Number: US-BAYER-200926852NA

PATIENT
  Age: 61 Year
  Sex: Female

DRUGS (2)
  1. BETASERON [Suspect]
     Indication: MULTIPLE SCLEROSIS
     Dosage: TOTAL DAILY DOSE: 2 MIU
     Route: 058
     Dates: start: 20090708, end: 20090709
  2. BETASERON [Suspect]
     Dosage: TOTAL DAILY DOSE: 2 MIU
     Route: 058
     Dates: start: 20090721

REACTIONS (5)
  - ASTHENIA [None]
  - DIARRHOEA [None]
  - INFLUENZA [None]
  - LOSS OF CONSCIOUSNESS [None]
  - PNEUMONIA [None]
